FAERS Safety Report 7114567-6 (Version None)
Quarter: 2010Q4

REPORT INFORMATION
  Report Type: 
  Country: None (occurrence: None)
  Receive Date: 20101120
  Receipt Date: 20101112
  Transmission Date: 20110411
  Serious: Yes (Hospitalization, Other)
  Sender: FDA-Public Use
  Company Number: US-AMGEN-USASP2010005089

PATIENT

DRUGS (1)
  1. ENBREL [Suspect]
     Indication: RHEUMATOID ARTHRITIS
     Dates: start: 20080101

REACTIONS (11)
  - CELLULITIS [None]
  - DEPRESSION [None]
  - HEADACHE [None]
  - INFLUENZA LIKE ILLNESS [None]
  - MYOCARDIAL INFARCTION [None]
  - OROPHARYNGEAL PAIN [None]
  - RESPIRATORY TRACT CONGESTION [None]
  - SECRETION DISCHARGE [None]
  - SINUS CONGESTION [None]
  - STRESS [None]
  - WHEEZING [None]
